FAERS Safety Report 9057640 (Version 1)
Quarter: 2013Q1

REPORT INFORMATION
  Report Type: Spontaneous
  Country: US (occurrence: None)
  Receive Date: 20130204
  Receipt Date: 20130204
  Transmission Date: 20140127
  Serious: Yes (Hospitalization)
  Sender: FDA-Public Use
  Company Number: None

PATIENT
  Age: 77 Year
  Sex: Male
  Weight: 86.9 kg

DRUGS (6)
  1. COUMADIN [Suspect]
     Indication: ATRIAL FIBRILLATION
     Dosage: CHRONIC
     Route: 048
  2. AUGMENTIN [Suspect]
     Indication: URINARY TRACT INFECTION
     Route: 048
  3. AMLODIPINE [Concomitant]
  4. LANSOPRAZOLE [Concomitant]
  5. METFORMIN [Concomitant]
  6. PRAVASTATIN [Concomitant]

REACTIONS (4)
  - Calculus ureteric [None]
  - International normalised ratio increased [None]
  - Drug interaction [None]
  - Ureteric obstruction [None]
